FAERS Safety Report 13674771 (Version 3)
Quarter: 2017Q3

REPORT INFORMATION
  Report Type: Spontaneous
  Country: US (occurrence: US)
  Receive Date: 20170621
  Receipt Date: 20170823
  Transmission Date: 20171127
  Serious: No
  Sender: FDA-Public Use
  Company Number: US-PFIZER INC-2017266126

PATIENT
  Age: 63 Year
  Sex: Female
  Weight: 91 kg

DRUGS (2)
  1. PROGESTERONE. [Concomitant]
     Active Substance: PROGESTERONE
     Indication: SUPPORTIVE CARE
     Dosage: 200 MG, 1X/DAY
     Dates: start: 2011
  2. ESTRING [Suspect]
     Active Substance: ESTRADIOL
     Indication: HYSTERECTOMY
     Dosage: UNK, EVERY 3 MONTHS
     Route: 067

REACTIONS (2)
  - Drug ineffective [Not Recovered/Not Resolved]
  - Product quality issue [Unknown]

NARRATIVE: CASE EVENT DATE: 201705
